FAERS Safety Report 17521611 (Version 1)
Quarter: 2020Q1

REPORT INFORMATION
  Report Type: Spontaneous
  Country: CA (occurrence: CA)
  Receive Date: 20200310
  Receipt Date: 20200310
  Transmission Date: 20200409
  Serious: Yes (Other)
  Sender: FDA-Public Use
  Company Number: CA-PFIZER INC-2020101492

PATIENT
  Age: 44 Year
  Sex: Male

DRUGS (13)
  1. CANNABIS SATIVA [Concomitant]
     Active Substance: CANNABIS SATIVA FLOWERING TOP
     Route: 065
  2. ROSUVASTATIN. [Suspect]
     Active Substance: ROSUVASTATIN
  3. CLOBETASOL [Concomitant]
     Active Substance: CLOBETASOL
     Route: 065
  4. DETROL [Concomitant]
     Active Substance: TOLTERODINE TARTRATE
     Route: 065
  5. METHOTREXATE SODIUM. [Suspect]
     Active Substance: METHOTREXATE SODIUM
  6. MELOXICAM. [Concomitant]
     Active Substance: MELOXICAM
     Route: 065
  7. NAPROXEN. [Concomitant]
     Active Substance: NAPROXEN
     Route: 065
  8. BACLOFEN. [Suspect]
     Active Substance: BACLOFEN
     Dosage: UNK
  9. COSENTYX [Suspect]
     Active Substance: SECUKINUMAB
     Indication: PSORIATIC ARTHROPATHY
     Route: 058
  10. DICLOFENAC SODIUM. [Suspect]
     Active Substance: DICLOFENAC SODIUM
     Dosage: UNK
  11. IRBESARTAN. [Suspect]
     Active Substance: IRBESARTAN
     Dosage: UNK
  12. METHYLPREDNISOLONE. [Concomitant]
     Active Substance: METHYLPREDNISOLONE
     Route: 065
  13. NORVASC [Concomitant]
     Active Substance: AMLODIPINE BESYLATE
     Route: 065

REACTIONS (10)
  - Blood pressure systolic increased [Unknown]
  - Drug ineffective [Unknown]
  - Lipoma [Unknown]
  - Psoriasis [Unknown]
  - Inflammatory marker increased [Unknown]
  - Musculoskeletal discomfort [Unknown]
  - Prostatic specific antigen increased [Unknown]
  - Seronegative arthritis [Unknown]
  - Arthralgia [Unknown]
  - Joint swelling [Unknown]
